FAERS Safety Report 4452575-4 (Version None)
Quarter: 2004Q3

REPORT INFORMATION
  Report Type: 
  Country: None (occurrence: None)
  Receive Date: 20040916
  Receipt Date: 20040902
  Transmission Date: 20050211
  Serious: Yes (Death)
  Sender: FDA-Public Use
  Company Number: 2004AP03973

PATIENT
  Age: 81 Year
  Sex: Male

DRUGS (9)
  1. IRESSA [Suspect]
     Indication: LUNG SQUAMOUS CELL CARCINOMA STAGE UNSPECIFIED
     Dosage: 250 MG DAILY PO
     Route: 048
     Dates: start: 20020908, end: 20021122
  2. IRESSA [Suspect]
     Indication: LUNG SQUAMOUS CELL CARCINOMA STAGE UNSPECIFIED
     Dosage: 250 MG DAILY PO
     Route: 048
     Dates: start: 20020809, end: 20021122
  3. PARIET [Suspect]
     Indication: REFLUX OESOPHAGITIS
     Dosage: 10 MG DAILY PO
     Route: 048
     Dates: start: 20040501
  4. KRESTIN [Suspect]
     Indication: LUNG SQUAMOUS CELL CARCINOMA STAGE UNSPECIFIED
     Dosage: 3 G DAILY PO
     Route: 048
     Dates: start: 20040612, end: 20040716
  5. DOCETAXEL [Concomitant]
  6. THEOLONG [Concomitant]
  7. MEDICON [Concomitant]
  8. LASIX [Concomitant]
  9. RINDERON [Concomitant]

REACTIONS (10)
  - ANAEMIA [None]
  - DYSPNOEA [None]
  - INTERSTITIAL LUNG DISEASE [None]
  - LUNG DISORDER [None]
  - OFF LABEL USE [None]
  - PCO2 DECREASED [None]
  - PERICARDIAL EFFUSION [None]
  - PO2 DECREASED [None]
  - PYREXIA [None]
  - RESPIRATORY FAILURE [None]
